FAERS Safety Report 18477678 (Version 5)
Quarter: 2021Q1

REPORT INFORMATION
  Report Type: Report from Study
  Country: US (occurrence: US)
  Receive Date: 20201108
  Receipt Date: 20210315
  Transmission Date: 20210419
  Serious: No
  Sender: FDA-Public Use
  Company Number: NVSC2020US292679

PATIENT
  Age: 34 Year
  Sex: Male

DRUGS (1)
  1. ENTRESTO [Suspect]
     Active Substance: SACUBITRIL\VALSARTAN
     Indication: PRODUCT USED FOR UNKNOWN INDICATION
     Dosage: 100 MG, BID (49/51 MG)
     Route: 048
     Dates: start: 20201020

REACTIONS (7)
  - Grip strength decreased [Recovering/Resolving]
  - Weight increased [Unknown]
  - Sleep study [Unknown]
  - Heart rate increased [Unknown]
  - Product dispensing issue [Unknown]
  - Weight decreased [Recovering/Resolving]
  - Stress [Unknown]

NARRATIVE: CASE EVENT DATE: 20201202
